FAERS Safety Report 8277385-1 (Version None)
Quarter: 2012Q2

REPORT INFORMATION
  Report Type: 
  Country: None (occurrence: None)
  Receive Date: 20120412
  Receipt Date: 20120329
  Transmission Date: 20120825
  Serious: Yes (Hospitalization)
  Sender: FDA-Public Use
  Company Number: LB-CELGENEUS-093-20785-11090433

PATIENT
  Sex: Male

DRUGS (2)
  1. PROSCAR [Concomitant]
     Route: 048
  2. THALIDOMIDE [Suspect]
     Indication: MULTIPLE MYELOMA
     Dosage: 200 MILLIGRAM
     Route: 048
     Dates: start: 20100201, end: 20110701

REACTIONS (2)
  - ARTHRITIS [None]
  - ABASIA [None]
